FAERS Safety Report 4625441-9 (Version None)
Quarter: 2005Q2

REPORT INFORMATION
  Report Type: 
  Country: None (occurrence: None)
  Receive Date: 20050401
  Receipt Date: 20050321
  Transmission Date: 20051028
  Serious: Yes (Hospitalization)
  Sender: FDA-Public Use
  Company Number: US-BRISTOL-MYERS SQUIBB COMPANY-12910220

PATIENT

DRUGS (1)
  1. COUMADIN [Suspect]
     Route: 048

REACTIONS (2)
  - HYPERTENSION [None]
  - MEDICATION ERROR [None]
